FAERS Safety Report 13394024 (Version 1)
Quarter: 2017Q1

REPORT INFORMATION
  Report Type: Spontaneous
  Country: US (occurrence: US)
  Receive Date: 20170331
  Receipt Date: 20170331
  Transmission Date: 20170429
  Serious: Yes (Hospitalization)
  Sender: FDA-Public Use
  Company Number: US-PRINSTON PHARMACEUTICAL INC.-2017PRN00101

PATIENT
  Sex: Female
  Weight: 74.83 kg

DRUGS (3)
  1. VALSARTAN. [Suspect]
     Active Substance: VALSARTAN
     Indication: HYPERTENSION
     Dosage: 1 TABLETS, 1X/DAY PRODUCT DISCONTINUED
     Route: 048
     Dates: start: 2015, end: 20161012
  2. VALSARTAN. [Suspect]
     Active Substance: VALSARTAN
     Dosage: 1 TABLETS, 1X/DAY PRODUCT RESTARTED
     Route: 048
     Dates: start: 20161110
  3. COPAXONE [Concomitant]
     Active Substance: GLATIRAMER ACETATE

REACTIONS (6)
  - Weight increased [Not Recovered/Not Resolved]
  - Peripheral swelling [Not Recovered/Not Resolved]
  - Arthralgia [Not Recovered/Not Resolved]
  - Vein disorder [Unknown]
  - Joint swelling [Not Recovered/Not Resolved]
  - Hip arthroplasty [Unknown]

NARRATIVE: CASE EVENT DATE: 2015
